FAERS Safety Report 9056824 (Version 1)
Quarter: 2013Q1

REPORT INFORMATION
  Report Type: Spontaneous
  Country: US (occurrence: US)
  Receive Date: 20130201
  Receipt Date: 20130201
  Transmission Date: 20140127
  Serious: No
  Sender: FDA-Public Use
  Company Number: US-GALDERMA-US-GDP-12415220

PATIENT
  Age: 36 None
  Sex: Female
  Weight: 29 kg

DRUGS (2)
  1. ADAPALENE AND BENZOYL PEROXIDE [Suspect]
     Indication: ACNE
     Dosage: UNKNOWN
     Route: 061
     Dates: start: 20120926
  2. CETAPHIL [Suspect]
     Indication: THERAPEUTIC SKIN CARE TOPICAL
     Dosage: UNKNOWN
     Route: 061
     Dates: start: 20120926

REACTIONS (1)
  - Seborrhoea [Not Recovered/Not Resolved]
